FAERS Safety Report 4507561-2 (Version None)
Quarter: 2004Q4

REPORT INFORMATION
  Report Type: 
  Country: None (occurrence: None)
  Receive Date: 20041118
  Receipt Date: 20041109
  Transmission Date: 20050328
  Serious: No
  Sender: FDA-Public Use
  Company Number: 2004-122286-NL

PATIENT
  Age: 50 Year
  Sex: Male

DRUGS (1)
  1. MIRTAZAPINE [Suspect]
     Indication: DEPRESSION
     Dosage: DF, ORAL
     Route: 048
     Dates: start: 20021101

REACTIONS (1)
  - SKIN CANCER [None]
